FAERS Safety Report 5633023-5 (Version None)
Quarter: 2008Q1

REPORT INFORMATION
  Report Type: 
  Country: None (occurrence: None)
  Receive Date: 20080214
  Receipt Date: 20080206
  Transmission Date: 20080703
  Serious: Yes (Other)
  Sender: FDA-Public Use
  Company Number: E2020-02232-SPO-ES

PATIENT
  Age: 77 Year
  Sex: Female

DRUGS (6)
  1. ARICEPT [Suspect]
     Indication: APHASIA
     Dosage: 10 MG, 1 IN 1 D, ORAL
     Route: 048
     Dates: start: 20060704
  2. DYSPORT (BOTULINUM TOXIN TYPE A) [Suspect]
     Indication: MUSCLE SPASTICITY
     Dosage: 750 IU, INTRAMUSCULAR
     Route: 030
     Dates: start: 20060714
  3. DICLOFENAC (DICLOFENAC) [Suspect]
     Indication: ANTIINFLAMMATORY THERAPY
     Dosage: 150 MG, 1 IN 1 8 HR, ORAL
     Route: 048
     Dates: start: 20060714
  4. VASERETIC [Suspect]
     Indication: HYPERTENSION
     Dosage: 1 DOSAGE FORMS, 1 IN 1 D, ORAL
     Route: 048
     Dates: start: 20060704
  5. ACETAMINOPHEN [Suspect]
     Indication: ANALGESIA
     Dosage: 3 GM, 1 IN  8 HR, ORAL
     Route: 048
     Dates: start: 20060714
  6. ACETAMINOPHEN [Concomitant]

REACTIONS (1)
  - HYPOTONIA [None]
